FAERS Safety Report 7537242-2 (Version None)
Quarter: 2011Q2

REPORT INFORMATION
  Report Type: 
  Country: None (occurrence: None)
  Receive Date: 20110524
  Receipt Date: 20110414
  Transmission Date: 20111010
  Serious: No
  Sender: FDA-Public Use
  Company Number: 031248

PATIENT
  Sex: Female
  Weight: 54.4 kg

DRUGS (5)
  1. CIMZIA [Suspect]
     Indication: CROHN'S DISEASE
     Dosage: 400MG 2 WEEKS 3 DOSES FIRST THEN WILL SEE WITH MD
     Route: 058
     Dates: start: 20110406
  2. MESALAMINE [Concomitant]
  3. PREDNISONE [Concomitant]
  4. MERCAPTOPURINE [Concomitant]
  5. PRILOSEC [Concomitant]

REACTIONS (2)
  - ABDOMINAL PAIN UPPER [None]
  - NAUSEA [None]
